FAERS Safety Report 12736384 (Version 11)
Quarter: 2018Q1

REPORT INFORMATION
  Report Type: Report from Study
  Country: US (occurrence: US)
  Receive Date: 20160912
  Receipt Date: 20180319
  Transmission Date: 20180508
  Serious: Yes (Hospitalization, Other)
  Sender: FDA-Public Use
  Company Number: US-JNJFOC-20160315540

PATIENT
  Age: 71 Year
  Sex: Male

DRUGS (30)
  1. RITUXAN [Concomitant]
     Active Substance: RITUXIMAB
     Indication: HAEMOLYSIS
     Dosage: 780 MG, Q MONTHLYX8
     Route: 042
     Dates: start: 20160308
  2. FLUTICASONE W/SALMETEROL [Concomitant]
     Active Substance: FLUTICASONE PROPIONATE\SALMETEROL XINAFOATE
     Dosage: 1 PUFF
  3. PANTOPRAZOLE [Concomitant]
     Active Substance: PANTOPRAZOLE
     Route: 048
  4. IMBRUVICA [Suspect]
     Active Substance: IBRUTINIB
     Indication: CHRONIC LYMPHOCYTIC LEUKAEMIA
     Route: 048
     Dates: start: 20160213, end: 2016
  5. IMBRUVICA [Suspect]
     Active Substance: IBRUTINIB
     Indication: CHRONIC LYMPHOCYTIC LEUKAEMIA
     Route: 048
     Dates: start: 2016
  6. RITUXAN [Concomitant]
     Active Substance: RITUXIMAB
     Indication: HAEMOLYSIS
     Route: 042
     Dates: start: 20160516, end: 20160516
  7. BENZONATATE. [Concomitant]
     Active Substance: BENZONATATE
     Indication: COUGH
     Dosage: 1 DF, PRN EVERY 8 HRS FOR 7 DAYS.
     Route: 048
  8. DOCOSANOL [Concomitant]
     Active Substance: DOCOSANOL
     Dosage: 5X PER DAY, 10 DAYS.
     Route: 061
  9. ZOLPIDEM [Concomitant]
     Active Substance: ZOLPIDEM\ZOLPIDEM TARTRATE
     Indication: INSOMNIA
     Dosage: AT BEDTIME DAILY
     Route: 048
  10. MULTIVITAMINS [Concomitant]
     Active Substance: VITAMINS
  11. PREDNISONE. [Concomitant]
     Active Substance: PREDNISONE
     Indication: HAEMOLYSIS
     Dosage: 15 DOSAGE FORMS
     Route: 048
  12. ALLOPURINOL. [Concomitant]
     Active Substance: ALLOPURINOL
     Route: 048
     Dates: start: 20160203
  13. ALLOPURINOL. [Concomitant]
     Active Substance: ALLOPURINOL
     Route: 048
  14. PROTONIX [Concomitant]
     Active Substance: PANTOPRAZOLE SODIUM
  15. PREDNISONE. [Concomitant]
     Active Substance: PREDNISONE
     Indication: HAEMOLYSIS
     Dosage: 15 DOSAGE FORMS
     Route: 048
     Dates: start: 20160223
  16. PREDNISONE. [Concomitant]
     Active Substance: PREDNISONE
     Indication: HAEMOLYSIS
     Dosage: 15 DOSAGE FORMS
     Route: 048
  17. ACETAMINOPHEN. [Concomitant]
     Active Substance: ACETAMINOPHEN
     Indication: PAIN
     Dosage: 2 DF, PRN, EVERY 4 HRS.
     Route: 048
  18. SULFAMETHOXAZOLE AND TRIMETHOPRIM [Concomitant]
     Active Substance: SULFAMETHOXAZOLE\TRIMETHOPRIM
     Route: 048
  19. TIMOLOL. [Concomitant]
     Active Substance: TIMOLOL
     Dosage: 1 DROPS, RIGHT EYE, EVERY EVENING
     Route: 047
  20. IMBRUVICA [Suspect]
     Active Substance: IBRUTINIB
     Indication: THERAPY NAIVE
     Route: 048
     Dates: start: 20160213, end: 2016
  21. IMBRUVICA [Suspect]
     Active Substance: IBRUTINIB
     Indication: THERAPY NAIVE
     Route: 048
     Dates: start: 2016
  22. ACETAMINOPHEN. [Concomitant]
     Active Substance: ACETAMINOPHEN
     Indication: PYREXIA
     Dosage: 2 DF, PRN, EVERY 4 HRS.
     Route: 048
  23. COLESTIPOL [Concomitant]
     Active Substance: COLESTIPOL
     Dosage: 1 DF, QD WITH FULL GLASS OF WATER.
     Route: 048
  24. OCUVITE [Concomitant]
     Active Substance: VITAMINS
     Dosage: AS NECESSARY
     Route: 048
  25. FOLIC ACID. [Concomitant]
     Active Substance: FOLIC ACID
     Route: 048
  26. RITUXAN [Concomitant]
     Active Substance: RITUXIMAB
     Indication: HAEMOLYSIS
     Dosage: 780 MG, Q MONTHLYX 4 WEEKS
     Route: 042
     Dates: start: 20160308
  27. PREDNISONE. [Concomitant]
     Active Substance: PREDNISONE
     Indication: HAEMOLYSIS
     Dosage: 15 DOSAGE FORMS
     Route: 048
     Dates: start: 2016
  28. PREDNISONE. [Concomitant]
     Active Substance: PREDNISONE
     Indication: HAEMOLYSIS
     Dosage: 15 DOSAGE FORMS, 1 DF, QD, 30 DAYS
     Route: 048
     Dates: start: 20160223, end: 20160308
  29. TETRYZOLINE HYDROCHLORIDE [Concomitant]
     Active Substance: TETRAHYDROZOLINE HYDROCHLORIDE
  30. LATANOPROST. [Concomitant]
     Active Substance: LATANOPROST
     Dosage: ONE DROP RIGHT EYE EVERY MORNING.
     Route: 047

REACTIONS (13)
  - Nasopharyngitis [Unknown]
  - Fluid retention [Recovered/Resolved]
  - Haemoglobin decreased [Recovering/Resolving]
  - Vomiting [Unknown]
  - Autoimmune haemolytic anaemia [Recovered/Resolved]
  - Upper respiratory tract congestion [Recovered/Resolved]
  - Pneumonia [Recovered/Resolved]
  - White blood cell count increased [Recovered/Resolved]
  - Gout [Recovering/Resolving]
  - Peripheral swelling [Unknown]
  - Mean cell volume decreased [Recovered/Resolved]
  - Thrombocytopenia [Recovering/Resolving]
  - Pleural effusion [Recovered/Resolved]

NARRATIVE: CASE EVENT DATE: 2016
